FAERS Safety Report 25995298 (Version 2)
Quarter: 2025Q4

REPORT INFORMATION
  Report Type: Spontaneous
  Country: EU (occurrence: EU)
  Receive Date: 20251104
  Receipt Date: 20251111
  Transmission Date: 20260118
  Serious: Yes (Disabling, Other)
  Sender: AUROBINDO
  Company Number: EU-FIMEA-202503892

PATIENT
  Age: 30 Year
  Sex: Female

DRUGS (3)
  1. OLANZAPINE [Suspect]
     Active Substance: OLANZAPINE
     Indication: Affective disorder
     Dosage: UNK (10MG/DAY /ALUSSA 10MG, ENNEN LOPETUSTA 30 MG P?IV?SS?)
     Route: 048
     Dates: start: 20210507
  2. OLANZAPINE [Suspect]
     Active Substance: OLANZAPINE
     Dosage: 30 MILLIGRAM, ONCE A DAY
     Route: 048
     Dates: end: 20220824
  3. ESCITALOPRAM [Concomitant]
     Active Substance: ESCITALOPRAM OXALATE
     Indication: Depression
     Dosage: UNK (20)
     Route: 048
     Dates: start: 202104

REACTIONS (7)
  - Self-destructive behaviour [Recovered/Resolved]
  - Blood prolactin increased [Recovered/Resolved]
  - Impaired work ability [Recovered/Resolved]
  - Cognitive disorder [Recovered/Resolved]
  - Self-injurious ideation [Recovered/Resolved]
  - Major depression [Recovered/Resolved]
  - Product use in unapproved indication [Recovered/Resolved]

NARRATIVE: CASE EVENT DATE: 20210501
